FAERS Safety Report 10388180 (Version 1)
Quarter: 2014Q3

REPORT INFORMATION
  Report Type: Spontaneous
  Country: US (occurrence: US)
  Receive Date: 20140815
  Receipt Date: 20140815
  Transmission Date: 20150326
  Serious: Yes (Hospitalization)
  Sender: FDA-Public Use
  Company Number: US-GLAXOSMITHKLINE-A1084373A

PATIENT
  Age: 73 Year
  Sex: Male

DRUGS (15)
  1. ATIVAN [Concomitant]
     Active Substance: LORAZEPAM
  2. CENTRUM SILVER [Concomitant]
     Active Substance: VITAMINS
  3. HYDRALAZINE [Concomitant]
     Active Substance: HYDRALAZINE HYDROCHLORIDE
  4. ISOSORBIDE [Concomitant]
     Active Substance: ISOSORBIDE
  5. METOPROLOL [Concomitant]
     Active Substance: METOPROLOL
  6. LISINOPRIL. [Concomitant]
     Active Substance: LISINOPRIL
  7. OXYGEN. [Concomitant]
     Active Substance: OXYGEN
  8. SERTRALINE [Concomitant]
     Active Substance: SERTRALINE HYDROCHLORIDE
  9. ADVAIR HFA [Suspect]
     Active Substance: FLUTICASONE PROPIONATE\SALMETEROL XINAFOATE
     Indication: CHRONIC OBSTRUCTIVE PULMONARY DISEASE
     Dosage: 1PUFF TWICE PER DAY
     Route: 055
  10. METOLAZONE. [Concomitant]
     Active Substance: METOLAZONE
  11. AMLODIPINE [Concomitant]
     Active Substance: AMLODIPINE BESYLATE
  12. POTASSIUM CL [Concomitant]
     Active Substance: POTASSIUM CHLORIDE
  13. LASIX [Concomitant]
     Active Substance: FUROSEMIDE
  14. TYLENOL [Concomitant]
     Active Substance: ACETAMINOPHEN
  15. SODIUM BICARB [Concomitant]

REACTIONS (18)
  - Arterial bypass operation [Unknown]
  - Peripheral arterial occlusive disease [Unknown]
  - Diarrhoea [Unknown]
  - Cardiovascular disorder [Unknown]
  - Pulmonary mass [Not Recovered/Not Resolved]
  - Lung disorder [Unknown]
  - Renal impairment [Not Recovered/Not Resolved]
  - Small intestine gangrene [Unknown]
  - Renal artery occlusion [Unknown]
  - Small intestinal resection [Unknown]
  - Adhesion [Unknown]
  - Malaise [Not Recovered/Not Resolved]
  - Adhesiolysis [Unknown]
  - Vascular graft occlusion [Not Recovered/Not Resolved]
  - Apparent death [Unknown]
  - Diabetes mellitus [Unknown]
  - Coronary artery occlusion [Unknown]
  - Abdominal pain upper [Unknown]
